FAERS Safety Report 23557864 (Version 1)
Quarter: 2024Q1

REPORT INFORMATION
  Report Type: Spontaneous
  Country: US (occurrence: US)
  Receive Date: 20240223
  Receipt Date: 20240223
  Transmission Date: 20240409
  Serious: No
  Sender: FDA-Public Use
  Company Number: US-MIMS-BCONMC-2430

PATIENT
  Age: 76 Year
  Sex: Male
  Weight: 126.98 kg

DRUGS (2)
  1. INSULIN GLARGINE [Suspect]
     Active Substance: INSULIN GLARGINE
     Indication: Type 2 diabetes mellitus
     Dosage: 20 UNITS/ML, ONCE A DAY
     Route: 058
     Dates: start: 20230829
  2. INSULIN GLARGINE [Suspect]
     Active Substance: INSULIN GLARGINE
     Dosage: 20 UNITS/ML, ONCE A DAY
     Route: 058

REACTIONS (1)
  - Device delivery system issue [Unknown]
